FAERS Safety Report 8564100-7 (Version None)
Quarter: 2012Q3

REPORT INFORMATION
  Report Type: 
  Country: None (occurrence: None)
  Receive Date: 20120803
  Receipt Date: 20120725
  Transmission Date: 20120928
  Serious: Yes (Hospitalization)
  Sender: FDA-Public Use
  Company Number: US-BAYER-201011579NA

PATIENT
  Age: 32 Year
  Sex: Female
  Weight: 58.957 kg

DRUGS (7)
  1. AVELOX [Concomitant]
     Indication: SUPERINFECTION
     Dosage: UNK
     Dates: start: 20060502
  2. AVELOX [Concomitant]
     Indication: PNEUMONIA
  3. DICLOFENAC SODIUM [Concomitant]
  4. VICODIN [Concomitant]
  5. YASMIN [Suspect]
     Indication: CONTRACEPTION
     Dosage: UNK
     Route: 048
     Dates: start: 20050919, end: 20060502
  6. FLEXERIL [Concomitant]
  7. MOTRIN [Concomitant]

REACTIONS (10)
  - PULMONARY EMBOLISM [None]
  - CHEST PAIN [None]
  - LUNG INFILTRATION [None]
  - PELVIC VENOUS THROMBOSIS [None]
  - BACK PAIN [None]
  - DYSPNOEA [None]
  - PLEURAL EFFUSION [None]
  - PAIN [None]
  - DIZZINESS [None]
  - HAEMOPTYSIS [None]
